FAERS Safety Report 7406895-1 (Version None)
Quarter: 2011Q2

REPORT INFORMATION
  Report Type: 
  Country: None (occurrence: None)
  Receive Date: 20110406
  Receipt Date: 20110406
  Transmission Date: 20111010
  Serious: Yes (Life-Threatening, Other)
  Sender: FDA-Public Use
  Company Number: None

PATIENT
  Age: 74 Year
  Sex: Female
  Weight: 82.1011 kg

DRUGS (2)
  1. LEVAQUIN [Suspect]
     Indication: RESPIRATORY TRACT INFECTION
     Dosage: 500MG TABLET 1 DAILY
     Dates: start: 20110128
  2. LEVAQUIN [Suspect]
     Indication: RESPIRATORY TRACT INFECTION
     Dosage: 500MG TABLET 1 DAILY
     Dates: start: 20110127

REACTIONS (6)
  - SUICIDAL IDEATION [None]
  - FEELING JITTERY [None]
  - PRURITUS [None]
  - FATIGUE [None]
  - INITIAL INSOMNIA [None]
  - ATRIAL FIBRILLATION [None]
